FAERS Safety Report 21570247 (Version 1)
Quarter: 2022Q4

REPORT INFORMATION
  Report Type: Report from Study
  Country: BR (occurrence: BR)
  Receive Date: 20221109
  Receipt Date: 20221109
  Transmission Date: 20230113
  Serious: Yes (Death)
  Sender: FDA-Public Use
  Company Number: BR-JNJFOC-20221111806

PATIENT
  Sex: Female

DRUGS (1)
  1. SIMPONI [Suspect]
     Active Substance: GOLIMUMAB
     Indication: Product used for unknown indication
     Dosage: TREATMENT END DATE: (APPROXIMATELY 5 MONTHS AGO)
     Route: 058
     Dates: start: 20150910, end: 2022

REACTIONS (1)
  - Viral infection [Fatal]
